FAERS Safety Report 6661455-5 (Version None)
Quarter: 2010Q1

REPORT INFORMATION
  Report Type: 
  Country: None (occurrence: None)
  Receive Date: 20100331
  Receipt Date: 20100326
  Transmission Date: 20100710
  Serious: Yes (Hospitalization)
  Sender: FDA-Public Use
  Company Number: US-MERCK-1003USA01552

PATIENT
  Age: 78 Year
  Sex: Female
  Weight: 104 kg

DRUGS (3)
  1. FOSAMAX [Suspect]
     Indication: ARTHRITIS
     Route: 048
     Dates: start: 20000101
  2. FOSAMAX PLUS D [Suspect]
     Indication: OSTEOPOROSIS PROPHYLAXIS
     Route: 048
  3. SYNTHROID [Concomitant]
     Route: 065

REACTIONS (6)
  - ARTHROPATHY [None]
  - BONE DENSITY DECREASED [None]
  - OEDEMA PERIPHERAL [None]
  - OFF LABEL USE [None]
  - SPINAL DISORDER [None]
  - SPONDYLITIS [None]
